FAERS Safety Report 14675066 (Version 3)
Quarter: 2018Q2

REPORT INFORMATION
  Report Type: Spontaneous
  Country: US (occurrence: US)
  Receive Date: 20180323
  Receipt Date: 20180510
  Transmission Date: 20180711
  Serious: Yes (Hospitalization, Other)
  Sender: FDA-Public Use
  Company Number: US-JNJFOC-20180323519

PATIENT
  Sex: Female
  Weight: 64.2 kg

DRUGS (4)
  1. PREDNISONE. [Concomitant]
     Active Substance: PREDNISONE
     Indication: RECTAL HAEMORRHAGE
     Route: 048
  2. UCERIS [Concomitant]
     Active Substance: BUDESONIDE
     Indication: RECTAL HAEMORRHAGE
     Route: 054
  3. REMICADE [Suspect]
     Active Substance: INFLIXIMAB
     Indication: COLITIS ULCERATIVE
     Dosage: PATIENT RECEIVED 28 INFLIXIMAB INFUSIONS
     Route: 042
     Dates: start: 20131115
  4. CANASA [Concomitant]
     Active Substance: MESALAMINE
     Indication: RECTAL HAEMORRHAGE
     Route: 054
     Dates: start: 20170424

REACTIONS (3)
  - Exposure during pregnancy [Recovered/Resolved]
  - Premature labour [Not Recovered/Not Resolved]
  - Rectal haemorrhage [Not Recovered/Not Resolved]
